FAERS Safety Report 4834762-6 (Version None)
Quarter: 2005Q4

REPORT INFORMATION
  Report Type: 
  Country: None (occurrence: None)
  Receive Date: 20051114
  Receipt Date: 20051101
  Transmission Date: 20060501
  Serious: Yes (Hospitalization, Disabling, Other)
  Sender: FDA-Public Use
  Company Number: 2005149420

PATIENT
  Sex: Female
  Weight: 121.1104 kg

DRUGS (14)
  1. XANAX [Suspect]
     Indication: ANXIETY
     Dosage: 1.5 MG (0.5 MG, 3 IN 1 D), ORAL
     Route: 048
  2. NORVASC [Suspect]
     Indication: HYPERTENSION
     Dosage: 10 MG (10 MG, 1 IN 1 D), ORAL
     Route: 048
     Dates: start: 19980101
  3. CELEBREX [Suspect]
     Indication: ARTHRITIS
     Dosage: 200 MG (200 MG, 1 IN 1 D), ORAL
     Route: 048
  4. BAYCOL [Suspect]
     Indication: ILL-DEFINED DISORDER
     Dates: start: 19980101
  5. COZAAR [Concomitant]
  6. CLONIDINE [Concomitant]
  7. ACCOLATE [Concomitant]
  8. FLOVENT [Concomitant]
  9. SPIRONOLACTONE [Concomitant]
  10. METOPROLOL TARTRATE [Concomitant]
  11. K-DUR 10 [Concomitant]
  12. BUMEX [Concomitant]
  13. PAXIL [Concomitant]
  14. NITROLINGUAL (GLYCERYL TRINITRATE) [Concomitant]

REACTIONS (17)
  - ANXIETY [None]
  - ARTHRITIS [None]
  - CARDIAC FAILURE CONGESTIVE [None]
  - CARDIOMEGALY [None]
  - CONDITION AGGRAVATED [None]
  - ECONOMIC PROBLEM [None]
  - HEADACHE [None]
  - HYPERTENSION [None]
  - IMMUNE SYSTEM DISORDER [None]
  - IMPAIRED WORK ABILITY [None]
  - INFLUENZA [None]
  - JOINT SWELLING [None]
  - MALAISE [None]
  - MUSCLE SPASMS [None]
  - MYOCARDIAL INFARCTION [None]
  - NASOPHARYNGITIS [None]
  - PNEUMONIA [None]
